FAERS Safety Report 6241597-9 (Version None)
Quarter: 2009Q2

REPORT INFORMATION
  Report Type: 
  Country: None (occurrence: None)
  Receive Date: 20090623
  Receipt Date: 20050603
  Transmission Date: 20091009
  Serious: Yes (Hospitalization)
  Sender: FDA-Public Use
  Company Number: ES-ROCHE-387111

PATIENT
  Sex: Female
  Weight: 74.5 kg

DRUGS (53)
  1. DACLIZUMAB [Suspect]
     Route: 042
     Dates: start: 20041019
  2. DACLIZUMAB [Suspect]
     Route: 042
     Dates: start: 20041103
  3. DACLIZUMAB [Suspect]
     Route: 042
     Dates: start: 20041201
  4. DACLIZUMAB [Suspect]
     Route: 042
     Dates: start: 20041213, end: 20041213
  5. MYCOPHENOLATE MOFETIL [Suspect]
     Route: 048
     Dates: start: 20041019
  6. MYCOPHENOLATE MOFETIL [Suspect]
     Route: 048
     Dates: start: 20041031
  7. MYCOPHENOLATE MOFETIL [Suspect]
     Route: 048
     Dates: start: 20041102
  8. MYCOPHENOLATE MOFETIL [Suspect]
     Route: 048
     Dates: start: 20041227
  9. MYCOPHENOLATE MOFETIL [Suspect]
     Route: 048
     Dates: start: 20050202
  10. MYCOPHENOLATE MOFETIL [Suspect]
     Route: 048
     Dates: start: 20060117
  11. MYCOPHENOLATE MOFETIL [Suspect]
     Route: 048
     Dates: start: 20060119
  12. MYCOPHENOLATE MOFETIL [Suspect]
     Route: 048
     Dates: start: 20060424
  13. MYCOPHENOLATE MOFETIL [Suspect]
     Route: 048
     Dates: start: 20060719
  14. SIROLIMUS [Suspect]
     Route: 048
     Dates: start: 20041019
  15. SIROLIMUS [Suspect]
     Route: 048
     Dates: start: 20041022
  16. SIROLIMUS [Suspect]
     Route: 048
     Dates: start: 20041103
  17. SIROLIMUS [Suspect]
     Route: 048
     Dates: start: 20041108
  18. SIROLIMUS [Suspect]
     Route: 048
     Dates: start: 20041111
  19. SIROLIMUS [Suspect]
     Route: 048
     Dates: start: 20041227
  20. SIROLIMUS [Suspect]
     Route: 048
     Dates: start: 20050627
  21. SIROLIMUS [Suspect]
     Route: 048
     Dates: start: 20050912, end: 20060425
  22. STEROID NOS [Suspect]
     Route: 042
     Dates: start: 20041019
  23. STEROID NOS [Suspect]
     Route: 042
     Dates: start: 20041104, end: 20041111
  24. STEROID NOS [Suspect]
     Route: 048
     Dates: start: 20041021
  25. STEROID NOS [Suspect]
     Route: 048
     Dates: start: 20041116
  26. STEROID NOS [Suspect]
     Route: 048
     Dates: start: 20041130
  27. STEROID NOS [Suspect]
     Route: 048
     Dates: start: 20050518
  28. STEROID NOS [Suspect]
     Route: 048
     Dates: start: 20051212
  29. PREDNISONE [Suspect]
     Route: 048
     Dates: start: 20041019
  30. PREDNISONE [Suspect]
     Route: 048
     Dates: start: 20041114
  31. OMEPRAZOLE [Concomitant]
     Route: 048
     Dates: start: 20041020
  32. COTRIMOXAZOLE [Concomitant]
     Route: 048
     Dates: start: 20041020, end: 20050419
  33. FUROSEMIDE [Concomitant]
     Dates: start: 20041114
  34. FUROSEMIDE [Concomitant]
     Dates: start: 20050627
  35. FUROSEMIDE [Concomitant]
     Dates: start: 20050915
  36. DOXAZOSIN MESYLATE [Concomitant]
     Route: 048
     Dates: start: 20050222
  37. DOXAZOSIN MESYLATE [Concomitant]
     Route: 048
     Dates: start: 20050518
  38. ATORVASTATIN CALCIUM [Concomitant]
     Dates: start: 20050223
  39. ATORVASTATIN CALCIUM [Concomitant]
     Dates: start: 20050418
  40. ATENOLOL [Concomitant]
     Dates: start: 20050627
  41. CALCIUM CARBONATE [Concomitant]
     Dates: start: 20041114
  42. CALCIUM CARBONATE [Concomitant]
     Dates: start: 20051211
  43. CALCIUM NOS [Concomitant]
     Dates: start: 20041114
  44. AMLODIPINE [Concomitant]
     Route: 048
     Dates: start: 20041227, end: 20050222
  45. AMOXICILLIN AND CLAVULANATE POTASSIUM [Concomitant]
     Dosage: DRUG: AMOXI-CLAVULANIC ACID; FORM: VIAL
     Route: 042
     Dates: start: 20041023, end: 20041027
  46. AMOXICILLIN AND CLAVULANATE POTASSIUM [Concomitant]
     Route: 042
     Dates: start: 20041117
  47. AMOXICILLIN AND CLAVULANATE POTASSIUM [Concomitant]
     Route: 042
     Dates: start: 20041118
  48. AMOXICILLIN AND CLAVULANATE POTASSIUM [Concomitant]
     Dosage: DRUG: AMOXI-CLAVULANIC ACID.
     Route: 048
     Dates: start: 20041125, end: 20041128
  49. CEFAZOLIN [Concomitant]
     Dosage: DRUG: CEPHAZOLINE
     Route: 042
     Dates: start: 20041019
  50. DARBEPOETIN ALFA [Concomitant]
     Dosage: DRUG: DARBOEPOTINE
     Route: 058
     Dates: start: 20050104
  51. DARBEPOETIN ALFA [Concomitant]
     Route: 058
     Dates: start: 20050418
  52. DARBEPOETIN ALFA [Concomitant]
     Route: 058
     Dates: start: 20050711
  53. DARBEPOETIN ALFA [Concomitant]
     Route: 058
     Dates: start: 20050822, end: 20050912

REACTIONS (3)
  - HERPES OPHTHALMIC [None]
  - ILEUS PARALYTIC [None]
  - URINARY TRACT INFECTION [None]
